FAERS Safety Report 4614819-5 (Version None)
Quarter: 2005Q1

REPORT INFORMATION
  Report Type: 
  Country: None (occurrence: None)
  Receive Date: 20050322
  Receipt Date: 20050228
  Transmission Date: 20050727
  Serious: Yes (Hospitalization)
  Sender: FDA-Public Use
  Company Number: PHHO2005AR03756

PATIENT
  Age: 83 Year
  Sex: Female

DRUGS (1)
  1. ZELMAC / HTF 919A [Suspect]
     Indication: INTESTINAL HYPOMOTILITY
     Dates: start: 20041001, end: 20041101

REACTIONS (3)
  - GALLBLADDER OPERATION [None]
  - PERITONITIS [None]
  - SURGERY [None]
